FAERS Safety Report 7787922-9 (Version None)
Quarter: 2011Q3

REPORT INFORMATION
  Report Type: 
  Country: None (occurrence: None)
  Receive Date: 20110930
  Receipt Date: 20110921
  Transmission Date: 20111222
  Serious: No
  Sender: FDA-Public Use
  Company Number: US-BIOGENIDEC-2011BI036384

PATIENT
  Sex: Female

DRUGS (2)
  1. TYSABRI [Suspect]
     Indication: MULTIPLE SCLEROSIS
     Route: 042
     Dates: start: 20090204
  2. TYSABRI [Suspect]
     Route: 042
     Dates: start: 20061003, end: 20070110

REACTIONS (2)
  - NASOPHARYNGITIS [None]
  - PYREXIA [None]
